FAERS Safety Report 15836842 (Version 4)
Quarter: 2019Q1

REPORT INFORMATION
  Report Type: Report from Study
  Country: US (occurrence: US)
  Receive Date: 20190117
  Receipt Date: 20190320
  Transmission Date: 20190417
  Serious: Yes (Other)
  Sender: FDA-Public Use
  Company Number: US-UCBSA-2019001392

PATIENT
  Age: 65 Year
  Sex: Female

DRUGS (4)
  1. CERTOLIZUMAB PEGOL [Suspect]
     Active Substance: CERTOLIZUMAB PEGOL
     Indication: RHEUMATOID ARTHRITIS
     Dosage: 400 MG, MONTHLY (QM)
     Dates: start: 20181026
  2. METHOTREXATE. [Concomitant]
     Active Substance: METHOTREXATE
     Indication: PRODUCT USED FOR UNKNOWN INDICATION
  3. LOSARTAN. [Concomitant]
     Active Substance: LOSARTAN
     Indication: HYPERTENSION
  4. LEVAQUIN [Concomitant]
     Active Substance: LEVOFLOXACIN
     Indication: EAR INFECTION
     Dosage: UNK
     Dates: start: 2018

REACTIONS (9)
  - Kidney infection [Not Recovered/Not Resolved]
  - Hypertension [Recovered/Resolved]
  - Oral pain [Recovered/Resolved]
  - Pruritus [Recovered/Resolved]
  - Rash [Not Recovered/Not Resolved]
  - Ear infection [Recovered/Resolved]
  - Urticaria [Not Recovered/Not Resolved]
  - Rheumatoid arthritis [Recovered/Resolved]
  - Oral discomfort [Recovered/Resolved]

NARRATIVE: CASE EVENT DATE: 201812
